FAERS Safety Report 8087640-6 (Version None)
Quarter: 2012Q1

REPORT INFORMATION
  Report Type: 
  Country: None (occurrence: None)
  Receive Date: 20120128
  Receipt Date: 20110526
  Transmission Date: 20120608
  Serious: No
  Sender: FDA-Public Use
  Company Number: US-ABBOTT-11P-163-0728699-00

PATIENT
  Sex: Male

DRUGS (13)
  1. LEXAPRO [Concomitant]
     Indication: PRODUCT USED FOR UNKNOWN INDICATION
  2. UNKNOWN MEDICATION [Concomitant]
     Indication: CONSTIPATION PROPHYLAXIS
  3. HUMIRA [Suspect]
     Dosage: DAY 8
     Route: 058
     Dates: start: 20110518
  4. METAMUCIL-2 [Concomitant]
     Indication: PRODUCT USED FOR UNKNOWN INDICATION
  5. UNKNOWN MEDICATION [Concomitant]
     Indication: BLOOD CHOLESTEROL
  6. HUMIRA [Suspect]
     Indication: PSORIASIS
     Dosage: DAY 1
     Route: 058
     Dates: start: 20110511, end: 20110511
  7. SINGULAIR [Concomitant]
     Indication: PRODUCT USED FOR UNKNOWN INDICATION
  8. POTASSIUM CHLORIDE [Concomitant]
     Indication: PRODUCT USED FOR UNKNOWN INDICATION
  9. UNKNOWN MEDICATION [Concomitant]
     Indication: PRODUCT USED FOR UNKNOWN INDICATION
  10. ASPIRIN [Concomitant]
     Indication: PRODUCT USED FOR UNKNOWN INDICATION
     Dosage: 81 MG DAILY
  11. OMEPRAZOLE [Concomitant]
     Indication: PRODUCT USED FOR UNKNOWN INDICATION
  12. ENALAPRIL MALEATE [Concomitant]
     Indication: PRODUCT USED FOR UNKNOWN INDICATION
  13. UNKNOWN MEDICATION [Concomitant]
     Indication: THYROID DISORDER

REACTIONS (2)
  - DIZZINESS [None]
  - NAUSEA [None]
